FAERS Safety Report 9185774 (Version 1)
Quarter: 2012Q4

REPORT INFORMATION
  Report Type: 
  Country: US (occurrence: US)
  Receive Date: 20121101
  Receipt Date: 20121101
  Transmission Date: 20130627
  Serious: Yes (Hospitalization, Disabling, Other)
  Sender: FDA-Public Use
  Company Number: US-009507513-1203USA03361

PATIENT

DRUGS (7)
  1. FOSAMAX [Suspect]
     Indication: OSTEOPOROSIS
     Dosage: 70 mg, QW
     Route: 048
     Dates: start: 20031029, end: 200803
  2. FOSAMAX [Suspect]
     Indication: OSTEOPENIA
     Dosage: 70 mg, QW
     Route: 048
     Dates: start: 200310
  3. CLARITIN [Concomitant]
     Indication: HYPERSENSITIVITY
     Route: 048
     Dates: start: 20051001
  4. MK-9278 [Concomitant]
  5. OS-CAL (CALCIUM CARBONATE) [Concomitant]
     Dosage: UNK mg, UNK
     Dates: start: 20050701
  6. ASPIRIN [Concomitant]
     Dosage: UNK mg, UNK
     Dates: start: 2005
  7. FOSAMAX [Suspect]
     Indication: OSTEOPOROSIS
     Dosage: 70 mg, QW
     Route: 048
     Dates: start: 20080304, end: 20110510

REACTIONS (28)
  - Femur fracture [Recovering/Resolving]
  - Low turnover osteopathy [Unknown]
  - Stress fracture [Unknown]
  - Femur fracture [Unknown]
  - Osteopenia [Unknown]
  - Fall [Unknown]
  - Skin lesion [Unknown]
  - Eye disorder [Unknown]
  - Cerumen impaction [Unknown]
  - Weight decreased [Unknown]
  - Anaemia postoperative [Recovered/Resolved]
  - Oedema [Unknown]
  - Fatigue [Unknown]
  - Helicobacter gastritis [Unknown]
  - Acquired oesophageal web [Unknown]
  - Hiatus hernia [Unknown]
  - Gastritis [Unknown]
  - Small intestine ulcer [Unknown]
  - Hyperlipidaemia [Unknown]
  - Hypercholesterolaemia [Unknown]
  - Otitis media [Unknown]
  - Cough [Unknown]
  - Pain [Unknown]
  - Respiratory tract congestion [Unknown]
  - Joint effusion [Unknown]
  - Impaired healing [Recovering/Resolving]
  - Osteoporosis [Unknown]
  - Oedema peripheral [Recovered/Resolved]
